FAERS Safety Report 5388625-0 (Version None)
Quarter: 2007Q3

REPORT INFORMATION
  Report Type: 
  Country: None (occurrence: None)
  Receive Date: 20070711
  Receipt Date: 20070627
  Transmission Date: 20080115
  Serious: Yes (Hospitalization)
  Sender: FDA-Public Use
  Company Number: IT-JNJFOC-20040909123

PATIENT
  Age: 50 Year
  Sex: Male
  Weight: 100 kg

DRUGS (4)
  1. RETEPLASE (RETEPLASE) [Suspect]
     Indication: ACUTE MYOCARDIAL INFARCTION
     Dosage: 5 IU; X1; IV
     Route: 042
     Dates: start: 20040926, end: 20040926
  2. ABCIXIMAB (ABCIXIMAB) [Suspect]
     Indication: ACUTE MYOCARDIAL INFARCTION
     Dosage: 12.5 ML; X1; IV; 19.0 ML; QH; IV
     Route: 042
     Dates: start: 20040926, end: 20040926
  3. ABCIXIMAB (ABCIXIMAB) [Suspect]
     Indication: ACUTE MYOCARDIAL INFARCTION
     Dosage: 12.5 ML; X1; IV; 19.0 ML; QH; IV
     Route: 042
     Dates: start: 20040926, end: 20040926
  4. HEPARIN [Concomitant]

REACTIONS (9)
  - BLOOD CHOLESTEROL INCREASED [None]
  - BLOOD CREATINE PHOSPHOKINASE MB INCREASED [None]
  - BLOOD GLUCOSE INCREASED [None]
  - BLOOD TRIGLYCERIDES INCREASED [None]
  - CORONARY ARTERY THROMBOSIS [None]
  - ELECTROCARDIOGRAM ST SEGMENT DEPRESSION [None]
  - MYOCARDIAL ISCHAEMIA [None]
  - POST PROCEDURAL COMPLICATION [None]
  - THROMBOCYTOPENIA [None]
